FAERS Safety Report 4662543-5 (Version None)
Quarter: 2005Q3

REPORT INFORMATION
  Report Type: 
  Country: None (occurrence: None)
  Receive Date: 20050516
  Receipt Date: 20050516
  Transmission Date: 20060218
  Serious: Yes (Other)
  Sender: FDA-Public Use
  Company Number: None

PATIENT
  Age: 79 Year
  Sex: Male

DRUGS (11)
  1. PRAVACHOL [Suspect]
     Dates: start: 19920319, end: 20041222
  2. TUMS [Concomitant]
  3. PREVACID [Concomitant]
  4. ROLAIDS [Concomitant]
  5. MYLANTA [Concomitant]
  6. PROTONIX [Concomitant]
  7. LEXAPRO [Concomitant]
  8. IRON [Concomitant]
  9. PHENERGAN [Concomitant]
  10. GLUCOSAMINE [Concomitant]
  11. SPRING VALLEY VITAMINS [Concomitant]

REACTIONS (11)
  - ABDOMINAL PAIN [None]
  - ALANINE AMINOTRANSFERASE INCREASED [None]
  - ALCOHOL USE [None]
  - ANAEMIA [None]
  - ASPARTATE AMINOTRANSFERASE INCREASED [None]
  - FATIGUE [None]
  - HEPATIC TRAUMA [None]
  - JAUNDICE [None]
  - LIVER FUNCTION TEST ABNORMAL [None]
  - MALAISE [None]
  - NAUSEA [None]
